FAERS Safety Report 5154432-7 (Version None)
Quarter: 2006Q4

REPORT INFORMATION
  Report Type: 
  Country: None (occurrence: None)
  Receive Date: 20061114
  Receipt Date: 20061102
  Transmission Date: 20070319
  Serious: Yes (Other)
  Sender: FDA-Public Use
  Company Number: 2006135597

PATIENT
  Age: 67 Year
  Sex: Female

DRUGS (4)
  1. LYRICA [Suspect]
     Dosage: 450 MG (150 MG),  ORAL
     Route: 048
     Dates: start: 20060110, end: 20061031
  2. MONITAN (ACEBUTOLOL HYDROCHLORIDE) [Concomitant]
  3. AVALIDE [Concomitant]
  4. AMITRIPTYLINE HCL [Concomitant]

REACTIONS (1)
  - OVARIAN CANCER RECURRENT [None]
